FAERS Safety Report 4690861-3 (Version None)
Quarter: 2005Q2

REPORT INFORMATION
  Report Type: 
  Country: None (occurrence: None)
  Receive Date: 20050613
  Receipt Date: 20050606
  Transmission Date: 20051028
  Serious: Yes (Hospitalization, Other)
  Sender: FDA-Public Use
  Company Number: USA-2004-0014914

PATIENT
  Age: 57 Year
  Sex: Male

DRUGS (14)
  1. OXYCODONE HCL [Suspect]
     Indication: PAIN
  2. CELEBREX [Concomitant]
  3. NITROGLYCERIN ^A.L.^ (GLYCERYL TRINITRATE) [Concomitant]
  4. UNIPHYL [Concomitant]
  5. ZOLOFT [Concomitant]
  6. GUAIFENEX (PHENYLPROPANOLAMINE HYDROCHLORIDE, PHENYLEPHRINE HYDROCHLOR [Concomitant]
  7. CARDURA [Concomitant]
  8. LOTREL [Concomitant]
  9. ALBUTEROL [Concomitant]
  10. IPRATROPIUM BROMIDE [Concomitant]
  11. ADVAIR DISKUS (FLUTICASONE PROPIONATE, SALMETEROL XINAFOATE) [Concomitant]
  12. RANITIDINE [Concomitant]
  13. SINGULAIR ^MERCK^ (MONTELUKAST SODIUM) [Concomitant]
  14. LEVAQUIN [Concomitant]

REACTIONS (42)
  - ANOSMIA [None]
  - ANXIETY [None]
  - BURNING SENSATION [None]
  - CHEST DISCOMFORT [None]
  - CHEST PAIN [None]
  - CONDITION AGGRAVATED [None]
  - COUGH [None]
  - DEAFNESS [None]
  - DELUSIONAL DISORDER, UNSPECIFIED TYPE [None]
  - DEPRESSION [None]
  - DRUG DEPENDENCE [None]
  - DRUG TOLERANCE [None]
  - DRUG WITHDRAWAL SYNDROME [None]
  - DRY EYE [None]
  - DYSPEPSIA [None]
  - DYSPHAGIA [None]
  - DYSPHONIA [None]
  - DYSPNOEA [None]
  - HEADACHE [None]
  - HYPOAESTHESIA [None]
  - JOINT SWELLING [None]
  - LYMPHADENOPATHY [None]
  - MEDICATION ERROR [None]
  - MYALGIA [None]
  - NASAL CONGESTION [None]
  - NASAL DISCOMFORT [None]
  - NECK PAIN [None]
  - OBSESSIVE-COMPULSIVE DISORDER [None]
  - OTORRHOEA [None]
  - PAIN [None]
  - PARANOIA [None]
  - PRURITUS [None]
  - RASH [None]
  - REGURGITATION OF FOOD [None]
  - RHINORRHOEA [None]
  - SHOULDER PAIN [None]
  - SNEEZING [None]
  - SNORING [None]
  - THIRST [None]
  - VISION BLURRED [None]
  - WEIGHT DECREASED [None]
  - WHEEZING [None]
